FAERS Safety Report 7318338-7 (Version None)
Quarter: 2011Q1

REPORT INFORMATION
  Report Type: 
  Country: None (occurrence: None)
  Receive Date: 20110218
  Receipt Date: 20110218
  Transmission Date: 20110831
  Serious: Yes (Hospitalization)
  Sender: FDA-Public Use
  Company Number: None

PATIENT
  Age: 81 Year
  Sex: Female
  Weight: 66.3 kg

DRUGS (18)
  1. PROTONIX [Concomitant]
  2. ADVAIR DISKUS 100/50 [Concomitant]
  3. AMITIZA [Concomitant]
  4. METFORMIN [Concomitant]
  5. POTASSIUM CHLORIDE [Concomitant]
  6. FORTICAL [Concomitant]
  7. SYNTHROID [Concomitant]
  8. COZAAR [Concomitant]
  9. PROPRANOLOL [Concomitant]
  10. SENNA [Concomitant]
  11. VIT D [Concomitant]
  12. ELAVIL [Concomitant]
  13. DIGOXIN [Suspect]
     Indication: CARDIAC FAILURE CONGESTIVE
     Dosage: 0.125MG DAILY PO CHRONIC
     Route: 048
  14. LASIX [Concomitant]
  15. ULTRAM [Concomitant]
  16. XALATAN [Concomitant]
  17. M.V.I. [Concomitant]
  18. COMBIVENT [Concomitant]

REACTIONS (4)
  - HYPERKALAEMIA [None]
  - TOXICITY TO VARIOUS AGENTS [None]
  - NO THERAPEUTIC RESPONSE [None]
  - NODAL ARRHYTHMIA [None]
